FAERS Safety Report 8158549-4 (Version None)
Quarter: 2012Q1

REPORT INFORMATION
  Report Type: 
  Country: None (occurrence: None)
  Receive Date: 20120221
  Receipt Date: 20120118
  Transmission Date: 20120608
  Serious: Yes (Other)
  Sender: FDA-Public Use
  Company Number: 2012AA000062

PATIENT
  Age: 39 Year
  Sex: Female

DRUGS (2)
  1. PHARMALGEN (802) VESPULA SPP. (PHARMALGEN (802) VESPULA SPP.) [Suspect]
     Indication: HYPERSENSITIVITY
     Dosage: 200 MICROGRAMS; MONTHLY; SUBCUTANEOUS
     Route: 058
     Dates: start: 20090101
  2. ALLERGEN EXTRACTS (ALLERGEN EXTRACTS) [Concomitant]

REACTIONS (7)
  - ANAPHYLACTIC SHOCK [None]
  - COUGH [None]
  - THROAT IRRITATION [None]
  - RASH [None]
  - INJECTION SITE REACTION [None]
  - OXYGEN SATURATION DECREASED [None]
  - DYSPNOEA [None]
